FAERS Safety Report 16374640 (Version 3)
Quarter: 2019Q2

REPORT INFORMATION
  Report Type: Spontaneous
  Country: JP (occurrence: JP)
  Receive Date: 20190530
  Receipt Date: 20190613
  Transmission Date: 20190711
  Serious: Yes (Hospitalization)
  Sender: FDA-Public Use
  Company Number: JP-VIFOR (INTERNATIONAL) INC.-VIT-2019-05318

PATIENT
  Age: 10 Decade
  Sex: Female

DRUGS (3)
  1. MIRCERA [Suspect]
     Active Substance: METHOXY POLYETHYLENE GLYCOL-EPOETIN BETA
     Dates: start: 2019
  2. MIRCERA [Suspect]
     Active Substance: METHOXY POLYETHYLENE GLYCOL-EPOETIN BETA
     Route: 058
     Dates: start: 2019, end: 2019
  3. MIRCERA [Suspect]
     Active Substance: METHOXY POLYETHYLENE GLYCOL-EPOETIN BETA
     Indication: NEPHROGENIC ANAEMIA
     Route: 058

REACTIONS (6)
  - Uterine prolapse [Unknown]
  - Loss of consciousness [Unknown]
  - Circulatory collapse [Unknown]
  - Hydronephrosis [Recovered/Resolved]
  - Chest pain [Unknown]
  - Fall [Unknown]

NARRATIVE: CASE EVENT DATE: 2019
